FAERS Safety Report 10904971 (Version 2)
Quarter: 2015Q2

REPORT INFORMATION
  Report Type: Spontaneous
  Country: US (occurrence: US)
  Receive Date: 20150311
  Receipt Date: 20150616
  Transmission Date: 20150821
  Serious: No
  Sender: FDA-Public Use
  Company Number: US-CELGENEUS-USA-2015021489

PATIENT
  Age: 56 Year
  Sex: Female

DRUGS (6)
  1. RAPTIVA [Concomitant]
     Active Substance: EFALIZUMAB
     Indication: PSORIASIS
     Route: 065
  2. SORIATANE [Concomitant]
     Active Substance: ACITRETIN
     Indication: PSORIASIS
     Route: 065
  3. STELARA [Concomitant]
     Active Substance: USTEKINUMAB
     Indication: PSORIASIS
     Route: 065
  4. OTEZLA [Suspect]
     Active Substance: APREMILAST
     Indication: PSORIASIS
     Dosage: 60 MILLIGRAM
     Route: 048
     Dates: start: 20150109, end: 20150206
  5. METHOTREXATE [Concomitant]
     Active Substance: METHOTREXATE
     Indication: PSORIASIS
     Route: 065
  6. ENBREL [Concomitant]
     Active Substance: ETANERCEPT
     Indication: PSORIASIS
     Route: 065

REACTIONS (3)
  - Malaise [Recovered/Resolved]
  - Drug ineffective [Unknown]
  - Immunosuppression [Recovered/Resolved]

NARRATIVE: CASE EVENT DATE: 20150123
